FAERS Safety Report 9387403 (Version 2)
Quarter: 2013Q3

REPORT INFORMATION
  Report Type: Spontaneous
  Country: JP (occurrence: JP)
  Receive Date: 20130708
  Receipt Date: 20130805
  Transmission Date: 20140515
  Serious: Yes (Other)
  Sender: FDA-Public Use
  Company Number: JP-SANOFI-AVENTIS-2013SA067723

PATIENT
  Age: 41 Year
  Sex: Female

DRUGS (6)
  1. FLUOROURACIL [Suspect]
     Indication: BREAST CANCER
     Route: 065
  2. EPIRUBICIN [Suspect]
     Indication: BREAST CANCER
     Route: 065
  3. ENDOXAN [Suspect]
     Indication: BREAST CANCER
     Route: 065
     Dates: start: 20121214, end: 20121214
  4. ONETAXOTERE [Suspect]
     Indication: BREAST CANCER
     Dosage: DOSE: 120 MG/BODY/WEEK
     Route: 042
     Dates: start: 20121214, end: 20121214
  5. CHLOR-TRIMETON [Concomitant]
     Dates: start: 20121214, end: 20121214
  6. DECADRON [Concomitant]
     Dates: start: 20121214, end: 20121214

REACTIONS (6)
  - Basedow^s disease [Recovered/Resolved]
  - Hyperthyroidism [Recovered/Resolved]
  - Palpitations [Recovered/Resolved]
  - Sinus tachycardia [Recovered/Resolved]
  - Anti-thyroid antibody positive [Recovered/Resolved]
  - Neuropathy peripheral [Recovered/Resolved]
